FAERS Safety Report 8015705-3 (Version None)
Quarter: 2011Q4

REPORT INFORMATION
  Report Type: 
  Country: None (occurrence: None)
  Receive Date: 20111230
  Receipt Date: 20110519
  Transmission Date: 20120403
  Serious: Yes (Other)
  Sender: FDA-Public Use
  Company Number: PHHY2011DE30092

PATIENT
  Sex: Male
  Weight: 76 kg

DRUGS (9)
  1. VITAMIN D [Concomitant]
     Indication: OSTEOPOROSIS
     Dosage: 4 MG, UNK
  2. FOLIC ACID [Concomitant]
     Indication: RHEUMATOID ARTHRITIS
     Dosage: 10 MG/WEEK
     Route: 048
     Dates: start: 20100101
  3. CALCIMAGON [Concomitant]
     Indication: OSTEOPOROSIS
     Route: 048
     Dates: start: 20100101
  4. CORTISONE ACETATE [Concomitant]
     Dosage: 10 MG, UNK
     Route: 048
     Dates: start: 20080101
  5. CALCIUM ACETATE [Concomitant]
     Indication: OSTEOPOROSIS
     Dosage: 1250 MG, UNK
  6. METHOTREXATE [Concomitant]
     Indication: RHEUMATOID ARTHRITIS
     Dosage: 15 MG,/WEEK
     Route: 048
     Dates: start: 20100101
  7. ZOLEDRONOC ACID [Suspect]
     Dosage: 5 MG, ONCE YEARLY
     Route: 042
     Dates: start: 20100318, end: 20100318
  8. PREDNISOLONE [Concomitant]
     Indication: RHEUMATOID ARTHRITIS
     Dosage: 7.5 MG, QD
     Route: 048
     Dates: start: 20100101
  9. ZOLEDRONOC ACID [Suspect]
     Dosage: 5 MG, ONCE YEARLY
     Route: 042
     Dates: start: 20110405, end: 20110405

REACTIONS (2)
  - HAND FRACTURE [None]
  - FALL [None]
